FAERS Safety Report 5907045-0 (Version None)
Quarter: 2008Q4

REPORT INFORMATION
  Report Type: 
  Country: None (occurrence: None)
  Receive Date: 20081003
  Receipt Date: 20080914
  Transmission Date: 20090506
  Serious: Yes (Hospitalization)
  Sender: FDA-Public Use
  Company Number: US-BAYER-200827447GPV

PATIENT
  Age: 66 Year
  Sex: Male

DRUGS (3)
  1. SORAFENIB [Suspect]
     Indication: HEPATIC NEOPLASM MALIGNANT
     Dates: start: 20080801
  2. BETA-BLOCKER [Concomitant]
     Indication: DRUG USE FOR UNKNOWN INDICATION
  3. HYPOGLYCEMICS [Concomitant]
     Indication: DRUG USE FOR UNKNOWN INDICATION
     Route: 048

REACTIONS (3)
  - ANAEMIA [None]
  - CEREBROVASCULAR ACCIDENT [None]
  - HEMIPARESIS [None]
